FAERS Safety Report 16082347 (Version 2)
Quarter: 2019Q2

REPORT INFORMATION
  Report Type: Spontaneous
  Country: None (occurrence: US)
  Receive Date: 20190318
  Receipt Date: 20190613
  Transmission Date: 20190711
  Serious: No
  Sender: FDA-Public Use
  Company Number: US-BIOGEN-2014BI006801

PATIENT
  Sex: Female

DRUGS (2)
  1. AVONEX [Suspect]
     Active Substance: INTERFERON BETA-1A
     Route: 030
     Dates: start: 20110713, end: 20111108
  2. AVONEX [Suspect]
     Active Substance: INTERFERON BETA-1A
     Indication: MULTIPLE SCLEROSIS
     Route: 030
     Dates: start: 20100626, end: 20110530

REACTIONS (4)
  - Memory impairment [Unknown]
  - Blepharospasm [Recovered/Resolved]
  - Back disorder [Not Recovered/Not Resolved]
  - Ocular icterus [Unknown]

NARRATIVE: CASE EVENT DATE: 2011
